FAERS Safety Report 5093921-0 (Version None)
Quarter: 2006Q3

REPORT INFORMATION
  Report Type: 
  Country: None (occurrence: None)
  Receive Date: 20060829
  Receipt Date: 20060816
  Transmission Date: 20061208
  Serious: Yes (Other)
  Sender: FDA-Public Use
  Company Number: 2006100496

PATIENT
  Age: 23 Year
  Sex: Female

DRUGS (1)
  1. FELDENE [Suspect]
     Indication: DRUG USE FOR UNKNOWN INDICATION
     Dosage: 10 TABLETS (SINGLE), ORAL
     Route: 048
     Dates: start: 20060815, end: 20060815

REACTIONS (4)
  - ABASIA [None]
  - APHASIA [None]
  - SUICIDE ATTEMPT [None]
  - UNEVALUABLE EVENT [None]
